FAERS Safety Report 7493583-9 (Version None)
Quarter: 2011Q2

REPORT INFORMATION
  Report Type: 
  Country: None (occurrence: None)
  Receive Date: 20110520
  Receipt Date: 20110516
  Transmission Date: 20111010
  Serious: Yes (Hospitalization)
  Sender: FDA-Public Use
  Company Number: AU-SANOFI-AVENTIS-2011SA030064

PATIENT
  Age: 68 Year
  Sex: Female

DRUGS (14)
  1. ASPIRIN [Concomitant]
  2. GLUCOSAMINE [Concomitant]
  3. ZINC [Concomitant]
  4. DOXYCYCLINE [Concomitant]
  5. MAGNESIUM [Concomitant]
  6. VITAMIN C [Concomitant]
  7. NAPROSYN [Concomitant]
  8. NEXIUM [Concomitant]
  9. FISH OIL [Concomitant]
  10. SELENIUM [Concomitant]
  11. ARAVA [Suspect]
     Route: 048
     Dates: start: 20090331
  12. CALCIUM/VITAMIN D [Concomitant]
  13. MOBIC [Concomitant]
  14. PANADOL [Concomitant]

REACTIONS (5)
  - CHEST PAIN [None]
  - HAEMORRHAGE [None]
  - NAUSEA [None]
  - SYNCOPE [None]
  - ABDOMINAL DISCOMFORT [None]
